FAERS Safety Report 6862949-X (Version None)
Quarter: 2010Q2

REPORT INFORMATION
  Report Type: 
  Country: None (occurrence: None)
  Receive Date: 20100528
  Receipt Date: 20100409
  Transmission Date: 20101027
  Serious: No
  Sender: FDA-Public Use
  Company Number: 009985

PATIENT
  Sex: Female

DRUGS (1)
  1. LACOSAMIDE [Suspect]
     Indication: CONVULSION
     Dosage: 50 MG BID ORAL, 100 MG BID ORAL, 50 MG BID ORAL
     Route: 048

REACTIONS (1)
  - DYSPNOEA [None]
